FAERS Safety Report 8489275-X (Version None)
Quarter: 2012Q3

REPORT INFORMATION
  Report Type: 
  Country: None (occurrence: None)
  Receive Date: 20120705
  Receipt Date: 20120703
  Transmission Date: 20120928
  Serious: Yes (Hospitalization)
  Sender: FDA-Public Use
  Company Number: IT-SANOFI-AVENTIS-2012SA040414

PATIENT
  Age: 78 Year
  Sex: Male

DRUGS (7)
  1. GLIMEPIRIDE [Suspect]
     Indication: DIABETES PROPHYLAXIS
     Route: 048
     Dates: start: 20120601, end: 20120601
  2. FLEBOCORTID RICHTER [Concomitant]
     Indication: ASTHMA
     Dosage: STRENGTH: 500MG/5ML
     Route: 042
     Dates: start: 20120531, end: 20120531
  3. DOXAZOSIN MESYLATE [Concomitant]
  4. OMEPRAZOLE [Concomitant]
  5. IRBESARTAN AND HYDROCHLOROTHIAZIDE [Concomitant]
     Dosage: STRENGTH: 300MG/25 MG
  6. AZITHROMYCIN [Concomitant]
  7. PREDNISONE TAB [Concomitant]
     Indication: ASTHMA
     Dosage: STRENGTH: 25 MG
     Route: 048
     Dates: start: 20120601, end: 20120602

REACTIONS (3)
  - GRAND MAL CONVULSION [None]
  - HYPOGLYCAEMIC COMA [None]
  - OFF LABEL USE [None]
